FAERS Safety Report 24793414 (Version 3)
Quarter: 2025Q3

REPORT INFORMATION
  Report Type: Spontaneous
  Country: US (occurrence: US)
  Receive Date: 20241231
  Receipt Date: 20250829
  Transmission Date: 20251021
  Serious: No
  Sender: GERON CORP
  Company Number: US-GERON CORPORATION-US-GER-24-000130

PATIENT
  Age: 85 Year
  Sex: Male

DRUGS (3)
  1. RYTELO [Suspect]
     Active Substance: IMETELSTAT SODIUM
     Indication: Product used for unknown indication
     Route: 065
     Dates: end: 202410
  2. RYTELO [Suspect]
     Active Substance: IMETELSTAT SODIUM
     Route: 065
     Dates: start: 20241120
  3. RYTELO [Suspect]
     Active Substance: IMETELSTAT SODIUM
     Route: 065

REACTIONS (4)
  - Full blood count decreased [Unknown]
  - Gastrointestinal disorder [Unknown]
  - Red blood cell count decreased [Unknown]
  - White blood cell count decreased [Not Recovered/Not Resolved]

NARRATIVE: CASE EVENT DATE: 20240101
